FAERS Safety Report 10176067 (Version 5)
Quarter: 2014Q1

REPORT INFORMATION
  Report Type: Spontaneous
  Country: US (occurrence: None)
  Receive Date: 20130816
  Receipt Date: 20140305
  Transmission Date: 20141002
  Serious: Yes (Hospitalization, Other)
  Sender: FDA-Public Use
  Company Number: ADR-2013-01369

PATIENT
  Age: 44 Year
  Sex: Male

DRUGS (3)
  1. LIORESAL INTRATHECAL (BACLOFEN INJECTION) [Suspect]
     Indication: MUSCLE SPASTICITY
  2. MORPHINE SULFATE [Suspect]
  3. COMPOUNDED BACLOFEN (INTRATHECAL) - 2000 MCG/ML [Suspect]

REACTIONS (18)
  - Muscle spasms [None]
  - Muscle twitching [None]
  - Abdominal distension [None]
  - Pain [None]
  - Musculoskeletal stiffness [None]
  - Headache [None]
  - Convulsion [None]
  - Device malfunction [None]
  - Pseudomonas infection [None]
  - Product deposit [None]
  - Product compounding quality issue [None]
  - Device leakage [None]
  - Drug withdrawal syndrome [None]
  - Drug ineffective [None]
  - Skin irritation [None]
  - Poor personal hygiene [None]
  - Device issue [None]
  - Muscle spasticity [None]
